FAERS Safety Report 4920076-2 (Version None)
Quarter: 2006Q1

REPORT INFORMATION
  Report Type: 
  Country: None (occurrence: None)
  Receive Date: 20060217
  Receipt Date: 20060210
  Transmission Date: 20060701
  Serious: Yes (Other)
  Sender: FDA-Public Use
  Company Number: 2006021375

PATIENT
  Sex: Female

DRUGS (1)
  1. LIPITOR [Suspect]
     Indication: ILL-DEFINED DISORDER

REACTIONS (4)
  - BLOOD CHOLESTEROL INCREASED [None]
  - CHOLECYSTOSTOMY [None]
  - DIARRHOEA [None]
  - TREATMENT NONCOMPLIANCE [None]
